FAERS Safety Report 19916750 (Version 1)
Quarter: 2021Q4

REPORT INFORMATION
  Report Type: Spontaneous
  Country: US (occurrence: US)
  Receive Date: 20211004
  Receipt Date: 20211004
  Transmission Date: 20220303
  Serious: No
  Sender: FDA-Public Use
  Company Number: None

PATIENT
  Sex: Male

DRUGS (2)
  1. LETAIRIS [Suspect]
     Active Substance: AMBRISENTAN
     Indication: Chronic obstructive pulmonary disease
     Dosage: ?          QUANTITY:1 TABLET(S);
     Route: 048
  2. LETAIRIS [Suspect]
     Active Substance: AMBRISENTAN
     Indication: Lower respiratory tract infection

REACTIONS (4)
  - Feeling abnormal [None]
  - Illness [None]
  - Dizziness [None]
  - Therapy interrupted [None]
